FAERS Safety Report 6120551-1 (Version None)
Quarter: 2009Q1

REPORT INFORMATION
  Report Type: 
  Country: None (occurrence: None)
  Receive Date: 20090312
  Receipt Date: 20090305
  Transmission Date: 20090719
  Serious: Yes (Hospitalization, Other)
  Sender: FDA-Public Use
  Company Number: GXKR2009DE02776

PATIENT
  Age: 59 Year
  Sex: Male
  Weight: 93 kg

DRUGS (8)
  1. AMIODARONE HCL [Suspect]
     Indication: ATRIAL FIBRILLATION
     Dosage: 400 MG, QD, ORAL; 600 MG, QD, ORAL
     Route: 048
     Dates: start: 20080510, end: 20080520
  2. AMIODARONE HCL [Suspect]
     Indication: ATRIAL FIBRILLATION
     Dosage: 400 MG, QD, ORAL; 600 MG, QD, ORAL
     Route: 048
     Dates: start: 20080520, end: 20080610
  3. ALDACTONE [Concomitant]
  4. ALLOPURINOL 300 (ALLOPURINOL) [Concomitant]
  5. BISOPROLOL10 (BISOPROLOL) [Concomitant]
  6. MARCUMAR [Concomitant]
  7. RAMIPRIL COMP (HYDROCHLOROTHIAZIDE, RAMIPRIL) [Concomitant]
  8. TORASEMIDE 5 (TORASEMIDE) [Concomitant]

REACTIONS (1)
  - OPTIC ATROPHY [None]
